FAERS Safety Report 11475211 (Version 2)
Quarter: 2016Q2

REPORT INFORMATION
  Report Type: Report from Study
  Country: US (occurrence: US)
  Receive Date: 20150909
  Receipt Date: 20160421
  Transmission Date: 20160815
  Serious: No
  Sender: FDA-Public Use
  Company Number: US-AMGEN-USASP2015091299

PATIENT
  Age: 65 Year
  Sex: Female

DRUGS (1)
  1. ENBREL [Suspect]
     Active Substance: ETANERCEPT
     Indication: RHEUMATOID ARTHRITIS
     Dosage: 50 MG, QWK
     Route: 065
     Dates: start: 20150903

REACTIONS (15)
  - Glucose tolerance impaired [Unknown]
  - Hypotension [Unknown]
  - Memory impairment [Unknown]
  - Injection site warmth [Unknown]
  - Musculoskeletal pain [Unknown]
  - Abdominal discomfort [Recovered/Resolved]
  - Pain [Unknown]
  - Pain in extremity [Unknown]
  - Peripheral swelling [Recovered/Resolved]
  - Injection site rash [Unknown]
  - Injection site swelling [Unknown]
  - Arthralgia [Unknown]
  - Feeling abnormal [Recovered/Resolved]
  - Headache [Recovered/Resolved]
  - Injection site erythema [Unknown]

NARRATIVE: CASE EVENT DATE: 20150903
